FAERS Safety Report 4424080-2 (Version None)
Quarter: 2004Q3

REPORT INFORMATION
  Report Type: 
  Country: None (occurrence: None)
  Receive Date: 20040809
  Receipt Date: 20040727
  Transmission Date: 20050211
  Serious: Yes (Other)
  Sender: FDA-Public Use
  Company Number: 2004042400

PATIENT
  Sex: Male

DRUGS (1)
  1. NEURONTIN [Suspect]
     Indication: BONE DISORDER
     Dosage: 200 MG (100 MG, 2 IN 1D) , ORAL
     Route: 048
     Dates: start: 20040307

REACTIONS (5)
  - BREAST CANCER [None]
  - NIPPLE DISORDER [None]
  - NODULE [None]
  - REFUSAL OF TREATMENT BY PATIENT [None]
  - TREATMENT NONCOMPLIANCE [None]
